FAERS Safety Report 9889388 (Version 1)
Quarter: 2014Q1

REPORT INFORMATION
  Report Type: Spontaneous
  Country: GB (occurrence: GB)
  Receive Date: 20140211
  Receipt Date: 20140211
  Transmission Date: 20141002
  Serious: Yes (Other)
  Sender: FDA-Public Use
  Company Number: CHNY2014GB000715

PATIENT
  Sex: 0

DRUGS (1)
  1. EX-LAX SENNA [Suspect]
     Indication: CONSTIPATION
     Dosage: 2 DF, UNK
     Route: 048
     Dates: start: 20140124, end: 20140126

REACTIONS (3)
  - Diarrhoea haemorrhagic [Recovered/Resolved with Sequelae]
  - Bladder pain [Not Recovered/Not Resolved]
  - Abdominal discomfort [Recovering/Resolving]
